FAERS Safety Report 11068634 (Version 1)
Quarter: 2015Q2

REPORT INFORMATION
  Report Type: Spontaneous
  Country: US (occurrence: US)
  Receive Date: 20150427
  Receipt Date: 20150427
  Transmission Date: 20150821
  Serious: No
  Sender: FDA-Public Use
  Company Number: US-PFIZER INC-2015144018

PATIENT
  Age: 89 Year
  Sex: Female

DRUGS (3)
  1. ARANESP [Concomitant]
     Active Substance: DARBEPOETIN ALFA
     Dosage: UNK, EVERY 2 WEEKS
  2. NEUPOGEN [Concomitant]
     Active Substance: FILGRASTIM
     Dosage: UNK, WEEKLY
  3. CELEBREX [Suspect]
     Active Substance: CELECOXIB
     Dosage: UNK
     Dates: start: 1995

REACTIONS (1)
  - Bone marrow disorder [Not Recovered/Not Resolved]
